FAERS Safety Report 4820037-8 (Version None)
Quarter: 2005Q4

REPORT INFORMATION
  Report Type: 
  Country: None (occurrence: None)
  Receive Date: 20051031
  Receipt Date: 20050914
  Transmission Date: 20060501
  Serious: No
  Sender: FDA-Public Use
  Company Number: WAES 0509USA01902

PATIENT
  Age: 69 Year
  Sex: Female

DRUGS (6)
  1. EMEND [Suspect]
     Indication: NAUSEA
     Dosage: 125MG/1X/PO; PO
     Route: 048
  2. DECADRON [Concomitant]
  3. KYTRIL [Concomitant]
  4. CYCLOPHOSPHAMIDE [Concomitant]
  5. EPIRUBICIN [Concomitant]
  6. FLUOROURACIL [Concomitant]

REACTIONS (3)
  - DRUG ADMINISTRATION ERROR [None]
  - NAUSEA [None]
  - VOMITING [None]
